FAERS Safety Report 21289889 (Version 2)
Quarter: 2022Q4

REPORT INFORMATION
  Report Type: Spontaneous
  Country: US (occurrence: US)
  Receive Date: 20220902
  Receipt Date: 20221007
  Transmission Date: 20230113
  Serious: No
  Sender: FDA-Public Use
  Company Number: US-BRISTOL-MYERS SQUIBB COMPANY-2022-099771

PATIENT
  Age: 72 Year
  Sex: Male

DRUGS (1)
  1. REVLIMID [Suspect]
     Active Substance: LENALIDOMIDE
     Indication: Plasma cell myeloma
     Dosage: FREQUENCY : TAKE 1 CAPSULE BY MOUTH DAILY FOR 21 DAYS WITH 1 WEEK OFF. 28 DAY CYCLE
     Route: 048
     Dates: start: 20220802

REACTIONS (5)
  - Rash pruritic [Unknown]
  - Rash erythematous [Not Recovered/Not Resolved]
  - Rash [Unknown]
  - Dysgeusia [Unknown]
  - Arthralgia [Unknown]
